FAERS Safety Report 7829890-7 (Version None)
Quarter: 2011Q4

REPORT INFORMATION
  Report Type: 
  Country: None (occurrence: None)
  Receive Date: 20111021
  Receipt Date: 20111012
  Transmission Date: 20120403
  Serious: Yes (Hospitalization)
  Sender: FDA-Public Use
  Company Number: JP-JNJFOC-20110902262

PATIENT
  Sex: Female
  Weight: 50 kg

DRUGS (7)
  1. RHEUMATREX [Suspect]
     Indication: RHEUMATOID ARTHRITIS
     Dosage: 4CAP/W
     Route: 048
     Dates: end: 20110825
  2. PROGRAF [Suspect]
     Indication: RHEUMATOID ARTHRITIS
     Dosage: 1 CAPSULE
     Route: 048
     Dates: end: 20110825
  3. ROCEPHIN [Concomitant]
     Route: 050
     Dates: start: 20110701, end: 20110801
  4. PREDNISONE [Concomitant]
     Indication: RHEUMATOID ARTHRITIS
     Route: 048
     Dates: end: 20110825
  5. REMICADE [Suspect]
     Indication: RHEUMATOID ARTHRITIS
     Route: 042
  6. REMICADE [Suspect]
     Dosage: TOTAL NUMBER OF INFLIXIMAB DOSES WAS UNKNOWN.
     Route: 042
     Dates: start: 20110818
  7. AZULFIDINE [Suspect]
     Indication: RHEUMATOID ARTHRITIS
     Dosage: 4 TABLETS
     Route: 048
     Dates: end: 20110825

REACTIONS (1)
  - CANDIDA PNEUMONIA [None]
